FAERS Safety Report 25898719 (Version 1)
Quarter: 2025Q4

REPORT INFORMATION
  Report Type: Spontaneous
  Country: GB (occurrence: GB)
  Receive Date: 20251009
  Receipt Date: 20251009
  Transmission Date: 20260117
  Serious: Yes (Disabling, Other)
  Sender: ACCORD
  Company Number: None

PATIENT
  Age: 19 Year
  Sex: Male
  Weight: 58 kg

DRUGS (2)
  1. SERTRALINE [Suspect]
     Active Substance: SERTRALINE HYDROCHLORIDE
     Indication: Anxiety
     Dosage: TAPERED FROM 0MG TO 200MG IN 2 WEEKS. REMAINED ON 200MG FOR 6 WEEKS.
     Dates: start: 20250301, end: 20250515
  2. AGOMELATINE [Concomitant]
     Active Substance: AGOMELATINE
     Indication: Anxiety
     Dates: start: 20250415, end: 20250801

REACTIONS (4)
  - Sexual dysfunction [Not Recovered/Not Resolved]
  - Anhedonia [Not Recovered/Not Resolved]
  - Brain fog [Not Recovered/Not Resolved]
  - Blunted affect [Not Recovered/Not Resolved]

NARRATIVE: CASE EVENT DATE: 20250515
